FAERS Safety Report 5773231-6 (Version None)
Quarter: 2008Q2

REPORT INFORMATION
  Report Type: 
  Country: None (occurrence: None)
  Receive Date: 20080616
  Receipt Date: 20080605
  Transmission Date: 20081010
  Serious: Yes (Other)
  Sender: FDA-Public Use
  Company Number: GB-TEVA-172624ISR

PATIENT
  Age: 34 Year
  Sex: Female
  Weight: 83.5 kg

DRUGS (1)
  1. TRIMETHOPRIM [Suspect]
     Indication: URINARY TRACT INFECTION
     Route: 048
     Dates: start: 20080519, end: 20080521

REACTIONS (2)
  - DYSPNOEA [None]
  - PALPITATIONS [None]
